FAERS Safety Report 5206395-3 (Version None)
Quarter: 2006Q4

REPORT INFORMATION
  Report Type: 
  Country: None (occurrence: None)
  Receive Date: 20061026
  Receipt Date: 20060901
  Transmission Date: 20070319
  Serious: Yes (Other)
  Sender: FDA-Public Use
  Company Number: 2006107696

PATIENT
  Sex: Female

DRUGS (3)
  1. LYRICA [Suspect]
     Indication: NEUROPATHY
     Dosage: 150 MG (75 MG, IN 1 D)
     Dates: start: 20060824, end: 20060826
  2. GAMMA-AMINOBUTYRIC ACID (GAMMA-AMINOBUTYRIC ACID) [Concomitant]
  3. GENERAL NUTRIENTS/HERBAL NOS (GENERAL NUTRIENTS, HERBAL NOS) [Concomitant]

REACTIONS (5)
  - DYSPNOEA [None]
  - NERVOUSNESS [None]
  - OEDEMA PERIPHERAL [None]
  - PRURITUS [None]
  - RASH [None]
